FAERS Safety Report 14296310 (Version 1)
Quarter: 2017Q4

REPORT INFORMATION
  Report Type: Report from Study
  Country: None (occurrence: US)
  Receive Date: 20171218
  Receipt Date: 20171218
  Transmission Date: 20180321
  Serious: Yes (Other)
  Sender: FDA-Public Use
  Company Number: US-ABBVIE-17K-163-2057449-00

PATIENT
  Sex: Female

DRUGS (3)
  1. HUMIRA [Suspect]
     Active Substance: ADALIMUMAB
     Indication: CROHN^S DISEASE
     Dosage: DAY 1
     Route: 058
     Dates: start: 201703, end: 201703
  2. HUMIRA [Suspect]
     Active Substance: ADALIMUMAB
     Dosage: DAY 15
     Route: 058
     Dates: start: 201703, end: 201703
  3. HUMIRA [Suspect]
     Active Substance: ADALIMUMAB
     Dosage: DAY 29
     Route: 058
     Dates: start: 201704

REACTIONS (28)
  - Peripheral swelling [Not Recovered/Not Resolved]
  - Diarrhoea [Recovering/Resolving]
  - Rhinorrhoea [Not Recovered/Not Resolved]
  - Eye pruritus [Not Recovered/Not Resolved]
  - Skin induration [Recovered/Resolved]
  - Skin plaque [Not Recovered/Not Resolved]
  - Alopecia [Unknown]
  - Vomiting [Recovering/Resolving]
  - Feeling hot [Unknown]
  - Hypoaesthesia [Unknown]
  - Sneezing [Not Recovered/Not Resolved]
  - Skin exfoliation [Not Recovered/Not Resolved]
  - Fungal infection [Unknown]
  - Abdominal pain upper [Recovering/Resolving]
  - Feeling hot [Recovered/Resolved]
  - Rash macular [Recovering/Resolving]
  - Nausea [Unknown]
  - Pruritus [Not Recovered/Not Resolved]
  - Insomnia [Unknown]
  - Weight decreased [Unknown]
  - Dandruff [Not Recovered/Not Resolved]
  - Skin swelling [Recovered/Resolved]
  - Neck mass [Recovered/Resolved]
  - Rectal stenosis [Unknown]
  - Malaise [Unknown]
  - Anxiety [Unknown]
  - Abdominal pain lower [Unknown]
  - Psoriasis [Unknown]

NARRATIVE: CASE EVENT DATE: 2017
